FAERS Safety Report 4298512-7 (Version None)
Quarter: 2004Q1

REPORT INFORMATION
  Report Type: 
  Country: None (occurrence: None)
  Receive Date: 20040218
  Receipt Date: 20040211
  Transmission Date: 20041129
  Serious: Yes (Hospitalization)
  Sender: FDA-Public Use
  Company Number: PHNR2004AU00658

PATIENT
  Age: 44 Year
  Sex: Male

DRUGS (3)
  1. CLOZARIL [Suspect]
     Indication: SCHIZOPHRENIA
     Dosage: 25 - 800 MG/DAY
     Route: 048
     Dates: start: 19960711, end: 20040201
  2. CLOZARIL [Suspect]
     Dosage: 300 MG, BID
     Route: 048
     Dates: start: 20040201
  3. VALPROIC ACID [Concomitant]
     Dates: start: 20031201

REACTIONS (4)
  - CONVULSION [None]
  - DRUG LEVEL INCREASED [None]
  - GAMMA-GLUTAMYLTRANSFERASE INCREASED [None]
  - RESTLESS LEGS SYNDROME [None]
